FAERS Safety Report 16987345 (Version 1)
Quarter: 2019Q4

REPORT INFORMATION
  Report Type: Spontaneous
  Country: NG (occurrence: NG)
  Receive Date: 20191102
  Receipt Date: 20191102
  Transmission Date: 20200122
  Serious: Yes (Death)
  Sender: FDA-Public Use
  Company Number: NG-MICRO LABS LIMITED-ML2019-02969

PATIENT

DRUGS (4)
  1. NEVIRAPINE. [Suspect]
     Active Substance: NEVIRAPINE
  2. ZIDOVUDINE. [Suspect]
     Active Substance: ZIDOVUDINE
  3. LAMIVUDINE. [Suspect]
     Active Substance: LAMIVUDINE
  4. COTRIMOXAZOLE [Concomitant]
     Active Substance: SULFAMETHOXAZOLE\TRIMETHOPRIM

REACTIONS (1)
  - Anaemia [Fatal]
